FAERS Safety Report 21196799 (Version 3)
Quarter: 2023Q4

REPORT INFORMATION
  Report Type: Spontaneous
  Country: US (occurrence: US)
  Receive Date: 20220810
  Receipt Date: 20231220
  Transmission Date: 20240110
  Serious: No
  Sender: FDA-Public Use
  Company Number: US-TEVA-2022-US-2063879

PATIENT
  Age: 58 Year

DRUGS (8)
  1. DOCETAXEL [Suspect]
     Active Substance: DOCETAXEL\DOCETAXEL ANHYDROUS
     Indication: Product used for unknown indication
     Dosage: DOSAGE TEXT: NUMBER OF CYCLE - 06, FREQUENCY- EVERY 3 WEEKS,PATIENT DID NOT RECALL THE EXACT DOSA...
     Route: 065
     Dates: start: 20190718, end: 20191031
  2. PERJETA [Suspect]
     Active Substance: PERTUZUMAB
     Indication: Breast cancer female
     Dosage: DOSAGE TEXT: NUMBER OF CYCLE - 06, FREQUENCY- EVERY 3 WEEKS
     Route: 065
     Dates: start: 20190718, end: 20191031
  3. SYNTHROID [Concomitant]
     Active Substance: LEVOTHYROXINE SODIUM
     Indication: Product used for unknown indication
     Route: 065
     Dates: start: 1986
  4. AMITRIPTYLINE [Concomitant]
     Active Substance: AMITRIPTYLINE
     Indication: Product used for unknown indication
     Route: 065
     Dates: start: 1986
  5. TRAZODONE [Concomitant]
     Active Substance: TRAZODONE HYDROCHLORIDE
     Indication: Product used for unknown indication
     Route: 065
     Dates: start: 1986
  6. SEROQUEL [Concomitant]
     Active Substance: QUETIAPINE FUMARATE
     Indication: Product used for unknown indication
     Route: 065
     Dates: start: 1986
  7. CARBOPLATIN [Suspect]
     Active Substance: CARBOPLATIN
     Indication: Breast cancer female
     Dosage: DOSAGE TEXT: NUMBER OF CYCLE - 06, FREQUENCY- EVERY 3 WEEKS
     Route: 065
     Dates: start: 20190718, end: 20191031
  8. HERCEPTIN [Suspect]
     Active Substance: TRASTUZUMAB
     Indication: Breast cancer female
     Dosage: DOSAGE TEXT: NUMBER OF CYCLE - 06, FREQUENCY- EVERY 3 WEEKS
     Route: 065
     Dates: start: 20190718, end: 20191031

REACTIONS (13)
  - Dacryostenosis acquired [Not Recovered/Not Resolved]
  - Lacrimation increased [Not Recovered/Not Resolved]
  - Foreign body sensation in eyes [Unknown]
  - Eye pain [Unknown]
  - Swelling of eyelid [Unknown]
  - Dacryostenosis acquired [Not Recovered/Not Resolved]
  - Ocular hyperaemia [Not Recovered/Not Resolved]
  - Eye pruritus [Not Recovered/Not Resolved]
  - Eye discharge [Not Recovered/Not Resolved]
  - Vision blurred [Unknown]
  - Eye irritation [Unknown]
  - Photophobia [Unknown]
  - Lacrimation increased [Not Recovered/Not Resolved]

NARRATIVE: CASE EVENT DATE: 20191001
